FAERS Safety Report 18926679 (Version 1)
Quarter: 2021Q1

REPORT INFORMATION
  Report Type: Spontaneous
  Country: FR (occurrence: FR)
  Receive Date: 20210223
  Receipt Date: 20210223
  Transmission Date: 20210420
  Serious: Yes (Hospitalization)
  Sender: FDA-Public Use
  Company Number: FR-TEVA-2021-FR-1882363

PATIENT
  Age: 82 Year
  Sex: Female

DRUGS (15)
  1. GELSEMIUM BOIRON [Concomitant]
     Route: 048
  2. SILDENAFIL. [Concomitant]
     Active Substance: SILDENAFIL
     Dosage: 60MILLIGRAM
     Route: 048
  3. TEMESTA 1 MG, COMPRIME SECABLE [Concomitant]
     Active Substance: LORAZEPAM
     Dosage: SCORED TABLET:0.5MILLIGRAM
     Route: 048
  4. SPIRONOLACTONE. [Concomitant]
     Active Substance: SPIRONOLACTONE
     Dosage: 25MILLIGRAM
     Route: 048
  5. FENTANYL. [Suspect]
     Active Substance: FENTANYL
     Indication: ANALGESIC THERAPY
     Dosage: 50MICROGRAM
     Route: 042
     Dates: start: 20201231, end: 20201231
  6. FUROSEMIDE. [Concomitant]
     Active Substance: FUROSEMIDE
     Dosage: 60MILLIGRAM
     Route: 048
  7. UVEDOSE 100 000 UI, SOLUTION BUVABLE EN AMPOULE [Concomitant]
     Active Substance: CHOLECALCIFEROL
     Dosage: 1DOSAGEFORM
     Route: 048
  8. LAROXYL 25 MG, COMPRIME PELLICULE [Concomitant]
     Active Substance: AMITRIPTYLINE
     Dosage: 25MILLIGRAM
     Route: 048
  9. PARACETAMOL [Concomitant]
     Active Substance: ACETAMINOPHEN
  10. BOSENTAN MONOHYDRATE [Concomitant]
     Active Substance: BOSENTAN
     Dosage: 250MILLIGRAM
  11. BROMAZEPAM [Concomitant]
     Active Substance: BROMAZEPAM
     Dosage: 3MILLIGRAM
     Route: 048
  12. PREVISCAN 20 MG, COMPRIME SECABLE [Concomitant]
     Active Substance: FLUINDIONE
     Dosage: 15MILLIGRAM
     Route: 048
  13. ESOMEPRAZOLE. [Concomitant]
     Active Substance: ESOMEPRAZOLE MAGNESIUM
     Dosage: 20MILLIGRAM
     Route: 048
  14. BISOPROLOL (HEMIFUMARATE DE) [Suspect]
     Active Substance: BISOPROLOL FUMARATE
     Indication: ATRIAL FIBRILLATION
     Dosage: 1.25MILLIGRAM
     Route: 048
     Dates: start: 20201230, end: 20210103
  15. DIFFU K, GELULE [Concomitant]
     Active Substance: POTASSIUM CHLORIDE
     Dosage: 2400MILLIGRAM

REACTIONS (2)
  - Lung disorder [Recovered/Resolved]
  - Acute kidney injury [Recovered/Resolved]

NARRATIVE: CASE EVENT DATE: 20210102
